FAERS Safety Report 7606461-9 (Version None)
Quarter: 2011Q3

REPORT INFORMATION
  Report Type: 
  Country: None (occurrence: None)
  Receive Date: 20110713
  Receipt Date: 20110629
  Transmission Date: 20111222
  Serious: Yes (Death)
  Sender: FDA-Public Use
  Company Number: CA-AMGEN-CANSP2011026124

PATIENT
  Age: 56 Year
  Sex: Male
  Weight: 86.168 kg

DRUGS (6)
  1. ASPIRIN [Concomitant]
     Dosage: UNK
  2. CELEXA [Concomitant]
     Dosage: UNK
  3. DOCUSATE [Concomitant]
     Dosage: UNK
  4. DILTIAZEM [Concomitant]
     Dosage: UNK
  5. ENBREL [Suspect]
     Indication: PSORIASIS
     Dosage: 50 MG, 2 TIMES/WK
     Dates: start: 20090505, end: 20110401
  6. GABAPENTIN [Concomitant]
     Dosage: UNK

REACTIONS (1)
  - MYOCARDIAL INFARCTION [None]
